FAERS Safety Report 9777646 (Version 3)
Quarter: 2014Q1

REPORT INFORMATION
  Report Type: Spontaneous
  Country: JP (occurrence: JP)
  Receive Date: 20131223
  Receipt Date: 20140326
  Transmission Date: 20141002
  Serious: Yes (Death, Hospitalization)
  Sender: FDA-Public Use
  Company Number: JP-ROCHE-1320485

PATIENT
  Age: 68 Year
  Sex: Male
  Weight: 70 kg

DRUGS (19)
  1. ACTEMRA [Suspect]
     Indication: SYSTEMIC INFLAMMATORY RESPONSE SYNDROME
     Dosage: FIVE TIME IN TOTAL ADMINISTERING
     Route: 041
     Dates: start: 20130529, end: 20130724
  2. SANDIMMUN [Suspect]
     Indication: SYSTEMIC INFLAMMATORY RESPONSE SYNDROME
     Dosage: 12-72MG
     Route: 065
  3. RITUXAN [Suspect]
     Indication: SYSTEMIC INFLAMMATORY RESPONSE SYNDROME
     Route: 041
     Dates: start: 20130501, end: 20130501
  4. RITUXAN [Suspect]
     Indication: SYSTEMIC INFLAMMATORY RESPONSE SYNDROME
     Route: 041
     Dates: start: 20130508, end: 20130508
  5. RITUXAN [Suspect]
     Indication: SYSTEMIC INFLAMMATORY RESPONSE SYNDROME
     Route: 041
     Dates: start: 20130515, end: 20130515
  6. RITUXAN [Suspect]
     Indication: SYSTEMIC INFLAMMATORY RESPONSE SYNDROME
     Route: 041
     Dates: start: 20130522, end: 20130522
  7. PREDONINE [Suspect]
     Indication: SYSTEMIC INFLAMMATORY RESPONSE SYNDROME
     Route: 065
     Dates: start: 20130422, end: 20130425
  8. PREDONINE [Suspect]
     Indication: SYSTEMIC INFLAMMATORY RESPONSE SYNDROME
     Route: 065
     Dates: start: 20130426, end: 20130503
  9. PREDONINE [Suspect]
     Indication: SYSTEMIC INFLAMMATORY RESPONSE SYNDROME
     Route: 065
     Dates: start: 20130504, end: 20130517
  10. PREDONINE [Suspect]
     Indication: SYSTEMIC INFLAMMATORY RESPONSE SYNDROME
     Route: 065
     Dates: start: 20130518, end: 20130531
  11. PREDONINE [Suspect]
     Indication: SYSTEMIC INFLAMMATORY RESPONSE SYNDROME
     Route: 065
     Dates: start: 20130601, end: 20130806
  12. SOLU-MEDROL [Suspect]
     Indication: SYSTEMIC INFLAMMATORY RESPONSE SYNDROME
     Route: 041
  13. GRAN [Concomitant]
     Dosage: DOSAGE IS UNCERTAIN.
     Route: 065
  14. DENOSINE [Concomitant]
     Indication: CYTOMEGALOVIRUS VIRAEMIA
     Dosage: DOSAGE IS UNCERTAIN.
     Route: 065
     Dates: start: 201305, end: 2013
  15. HANP [Concomitant]
     Dosage: DOSAGE IS UNCERTAIN.
     Route: 065
  16. OMEPRAL [Concomitant]
     Dosage: DOSAGE IS UNCERTAIN.
     Route: 065
  17. FUNGUARD [Concomitant]
     Dosage: DOSAGE IS UNCERTAIN.
     Route: 065
  18. BACTRAMIN [Concomitant]
     Dosage: DOSAGE IS UNCERTAIN.
     Route: 065
  19. MAXIPIME [Concomitant]
     Dosage: DOSAGE IS UNCERTAIN.
     Route: 065

REACTIONS (6)
  - Cholecystitis acute [Fatal]
  - Sepsis [Fatal]
  - Multi-organ failure [Fatal]
  - Cytomegalovirus viraemia [Fatal]
  - Acute hepatic failure [Fatal]
  - Off label use [Unknown]
